FAERS Safety Report 5329649-9 (Version None)
Quarter: 2007Q2

REPORT INFORMATION
  Report Type: 
  Country: None (occurrence: None)
  Receive Date: 20070227
  Receipt Date: 20060321
  Transmission Date: 20071010
  Serious: Yes (Other)
  Sender: FDA-Public Use
  Company Number: 441497

PATIENT
  Age: 24 Year
  Sex: Male
  Weight: 88.5 kg

DRUGS (1)
  1. ACCUTANE [Suspect]
     Indication: ACNE CYSTIC
     Dosage: 80 MG 1 PER 2 DAY ORAL
     Route: 048
     Dates: start: 20050919, end: 20060319

REACTIONS (3)
  - BACK PAIN [None]
  - BLOOD CREATINE PHOSPHOKINASE INCREASED [None]
  - MUSCULOSKELETAL PAIN [None]
